FAERS Safety Report 10185649 (Version 2)
Quarter: 2014Q2

REPORT INFORMATION
  Report Type: Spontaneous
  Country: US (occurrence: US)
  Receive Date: 20140521
  Receipt Date: 20140521
  Transmission Date: 20141212
  Serious: Yes (Hospitalization)
  Sender: FDA-Public Use
  Company Number: US-BAXTER-2014BAX023243

PATIENT
  Sex: Female

DRUGS (3)
  1. DIANEAL LOW CALCIUM [Suspect]
     Indication: RENAL FAILURE CHRONIC
     Route: 033
     Dates: start: 20110217
  2. DIANEAL LOW CALCIUM [Suspect]
     Dosage: MID DAY EXCHANGE
     Route: 033
     Dates: start: 20110217
  3. DIANEAL LOW CALCIUM [Suspect]
     Route: 033
     Dates: start: 20110217

REACTIONS (1)
  - Blood parathyroid hormone increased [Recovering/Resolving]
